FAERS Safety Report 7754342-2 (Version None)
Quarter: 2011Q3

REPORT INFORMATION
  Report Type: 
  Country: None (occurrence: None)
  Receive Date: 20110915
  Receipt Date: 20110907
  Transmission Date: 20111222
  Serious: Yes (Other)
  Sender: FDA-Public Use
  Company Number: PHHY2011IT80488

PATIENT
  Age: 80 Year
  Sex: Female

DRUGS (1)
  1. ALLOPURINOL [Suspect]
     Dosage: UNK UKN, UNK

REACTIONS (5)
  - ERYTHEMA MULTIFORME [None]
  - PURPURA [None]
  - CUTANEOUS LUPUS ERYTHEMATOSUS [None]
  - SKIN LESION [None]
  - BUTTERFLY RASH [None]
